FAERS Safety Report 10169605 (Version 3)
Quarter: 2014Q2

REPORT INFORMATION
  Report Type: Spontaneous
  Country: US (occurrence: US)
  Receive Date: 20140513
  Receipt Date: 20140605
  Transmission Date: 20141212
  Serious: Yes (Hospitalization)
  Sender: FDA-Public Use
  Company Number: US-LUNDBECK-DKLU1099767

PATIENT
  Age: 55 Year
  Sex: Male

DRUGS (5)
  1. SABRIL     (TABLET) [Suspect]
     Indication: EPILEPSY
     Route: 048
     Dates: start: 20131224
  2. SABRIL     (TABLET) [Suspect]
     Dates: start: 201310
  3. LAMOTRIGINE [Concomitant]
     Indication: PRODUCT USED FOR UNKNOWN INDICATION
  4. TOPAMAX [Concomitant]
     Indication: PRODUCT USED FOR UNKNOWN INDICATION
  5. KEPPRA [Concomitant]
     Indication: PRODUCT USED FOR UNKNOWN INDICATION

REACTIONS (1)
  - Transient ischaemic attack [Recovered/Resolved]
